FAERS Safety Report 4342516-2 (Version None)
Quarter: 2004Q2

REPORT INFORMATION
  Report Type: 
  Country: None (occurrence: None)
  Receive Date: 20040415
  Receipt Date: 20040401
  Transmission Date: 20050107
  Serious: No
  Sender: FDA-Public Use
  Company Number: CART-10322

PATIENT
  Age: 43 Year
  Sex: Female

DRUGS (1)
  1. CARTICEL [Suspect]
     Indication: ARTHROPATHY
     Dosage: 1 NA ONCE IS
     Route: 035
     Dates: start: 20020418, end: 20020418

REACTIONS (5)
  - ARTHROFIBROSIS [None]
  - FAILURE OF IMPLANT [None]
  - JOINT RANGE OF MOTION DECREASED [None]
  - LOCALISED OSTEOARTHRITIS [None]
  - MENISCUS LESION [None]
